FAERS Safety Report 8607652-0 (Version None)
Quarter: 2012Q3

REPORT INFORMATION
  Report Type: 
  Country: None (occurrence: None)
  Receive Date: 20120821
  Receipt Date: 20120807
  Transmission Date: 20120928
  Serious: Yes (Hospitalization)
  Sender: FDA-Public Use
  Company Number: GB-MYLANLABS-2012S1016330

PATIENT
  Age: 43 Year
  Sex: Female

DRUGS (2)
  1. METHADONE HYDROCHLORIDE [Suspect]
     Indication: INTENTIONAL OVERDOSE
     Dosage: 180MG
     Route: 065
  2. ALPRAZOLAM [Suspect]
     Indication: INTENTIONAL OVERDOSE
     Dosage: 15MG
     Route: 065

REACTIONS (5)
  - HEPATIC FAILURE [None]
  - PNEUMONIA ASPIRATION [None]
  - LEUKOENCEPHALOPATHY [None]
  - RENAL TUBULAR NECROSIS [None]
  - INTENTIONAL OVERDOSE [None]
